FAERS Safety Report 24783947 (Version 1)
Quarter: 2024Q4

REPORT INFORMATION
  Report Type: Spontaneous
  Country: US (occurrence: US)
  Receive Date: 20241227
  Receipt Date: 20241227
  Transmission Date: 20250115
  Serious: No
  Sender: SANDOZ
  Company Number: US-SANDOZ-SDZ2024US104936

PATIENT
  Age: 75 Year
  Sex: Female

DRUGS (1)
  1. EZETIMIBE [Suspect]
     Active Substance: EZETIMIBE
     Indication: Low density lipoprotein
     Dosage: UNK
     Route: 065

REACTIONS (1)
  - Low density lipoprotein abnormal [Unknown]
